FAERS Safety Report 12701451 (Version 2)
Quarter: 2016Q4

REPORT INFORMATION
  Report Type: Spontaneous
  Country: US (occurrence: US)
  Receive Date: 20160831
  Receipt Date: 20161020
  Transmission Date: 20170207
  Serious: No
  Sender: FDA-Public Use
  Company Number: US-PFIZER INC-2016397948

PATIENT
  Age: 77 Year
  Sex: Male
  Weight: 83 kg

DRUGS (2)
  1. QUINAPRIL. [Suspect]
     Active Substance: QUINAPRIL
     Dosage: 10 MG, 1X/DAY
     Route: 048
     Dates: start: 201608, end: 20160819
  2. QUINAPRIL. [Suspect]
     Active Substance: QUINAPRIL
     Indication: BLOOD PRESSURE ABNORMAL
     Dosage: UNK
     Dates: start: 2014

REACTIONS (1)
  - Headache [Recovered/Resolved]

NARRATIVE: CASE EVENT DATE: 2014
